FAERS Safety Report 14163502 (Version 2)
Quarter: 2019Q2

REPORT INFORMATION
  Report Type: Spontaneous
  Country: CA (occurrence: CA)
  Receive Date: 20171106
  Receipt Date: 20190416
  Transmission Date: 20190711
  Serious: Yes (Other)
  Sender: FDA-Public Use
  Company Number: CA-PFIZER INC-2017447641

PATIENT
  Age: 41 Year
  Sex: Female

DRUGS (1)
  1. METHOTREXATE SODIUM. [Suspect]
     Active Substance: METHOTREXATE SODIUM
     Indication: RHEUMATOID ARTHRITIS
     Dosage: UNK
     Dates: start: 1993, end: 1993

REACTIONS (5)
  - White blood cell count decreased [Unknown]
  - Alopecia [Unknown]
  - Drug intolerance [Unknown]
  - Bone marrow toxicity [Unknown]
  - Weight decreased [Unknown]
